FAERS Safety Report 26211521 (Version 1)
Quarter: 2025Q4

REPORT INFORMATION
  Report Type: Spontaneous
  Country: CA (occurrence: CA)
  Receive Date: 20251230
  Receipt Date: 20251230
  Transmission Date: 20260117
  Serious: Yes (Life-Threatening)
  Sender: ACCORD
  Company Number: None

PATIENT
  Age: 55 Year
  Sex: Female

DRUGS (5)
  1. ONDANSETRON [Suspect]
     Active Substance: ONDANSETRON
     Indication: Vomiting
     Dosage: ONCE
  2. CLONAZEPAM [Concomitant]
     Active Substance: CLONAZEPAM
  3. LAMOTRIGINE [Concomitant]
     Active Substance: LAMOTRIGINE
  4. LITHIUM [Concomitant]
     Active Substance: LITHIUM
  5. QUETIAPINE [Concomitant]
     Active Substance: QUETIAPINE

REACTIONS (5)
  - Cardiac arrest [Recovered/Resolved]
  - Unresponsive to stimuli [Recovered/Resolved]
  - Torsade de pointes [Recovered/Resolved]
  - Bundle branch block right [Recovered/Resolved]
  - Pulse absent [Recovered/Resolved]
